FAERS Safety Report 15001241 (Version 2)
Quarter: 2018Q3

REPORT INFORMATION
  Report Type: Spontaneous
  Country: US (occurrence: US)
  Receive Date: 20180612
  Receipt Date: 20180824
  Transmission Date: 20181010
  Serious: Yes (Other)
  Sender: FDA-Public Use
  Company Number: US-BAYER-2018-111234

PATIENT
  Age: 22 Year
  Sex: Female
  Weight: 140.1 kg

DRUGS (2)
  1. MIRENA [Suspect]
     Active Substance: LEVONORGESTREL
     Indication: MENORRHAGIA
     Dosage: 20 MCG/24HR, CONT
     Route: 015
     Dates: start: 20180607, end: 2018
  2. MIRENA [Suspect]
     Active Substance: LEVONORGESTREL
     Indication: CONTRACEPTION
     Dosage: 20 MCG/24HR, CONT
     Route: 015
     Dates: start: 20180517, end: 20180602

REACTIONS (20)
  - Genital haemorrhage [None]
  - Device expulsion [None]
  - Device expulsion [None]
  - Pelvic pain [None]
  - Menstruation irregular [None]
  - Pain [None]
  - Nausea [None]
  - Pelvic discomfort [None]
  - Abdominal pain lower [None]
  - Dizziness [None]
  - Weight increased [None]
  - Device difficult to use [None]
  - Dysmenorrhoea [None]
  - Uterine polyp [None]
  - Pelvic pain [None]
  - Menorrhagia [None]
  - Dyspareunia [None]
  - Back pain [None]
  - Procedural pain [None]
  - Hot flush [None]

NARRATIVE: CASE EVENT DATE: 2018
